FAERS Safety Report 11546553 (Version 2)
Quarter: 2017Q1

REPORT INFORMATION
  Report Type: Spontaneous
  Country: US (occurrence: US)
  Receive Date: 20150924
  Receipt Date: 20170123
  Transmission Date: 20170428
  Serious: Yes (Other)
  Sender: FDA-Public Use
  Company Number: US-ELI_LILLY_AND_COMPANY-US201509004855

PATIENT
  Sex: Female
  Weight: 79 kg

DRUGS (2)
  1. CYMBALTA [Suspect]
     Active Substance: DULOXETINE HYDROCHLORIDE
     Indication: ANXIETY
  2. CYMBALTA [Suspect]
     Active Substance: DULOXETINE HYDROCHLORIDE
     Indication: DEPRESSION
     Dosage: 60 MG, QD
     Route: 048
     Dates: start: 20060408, end: 2014

REACTIONS (18)
  - Agitation [Unknown]
  - Suicide attempt [Unknown]
  - Affect lability [Unknown]
  - Paraesthesia [Unknown]
  - Mood swings [Unknown]
  - Suicidal ideation [Unknown]
  - Sleep disorder [Unknown]
  - Insomnia [Unknown]
  - Headache [Unknown]
  - Dysphoria [Unknown]
  - Anxiety [Unknown]
  - Vertigo [Unknown]
  - Nightmare [Unknown]
  - Irritability [Unknown]
  - Withdrawal syndrome [Unknown]
  - Feeling abnormal [Unknown]
  - Anger [Unknown]
  - Dizziness [Unknown]

NARRATIVE: CASE EVENT DATE: 2007
